FAERS Safety Report 7105214-8 (Version None)
Quarter: 2010Q4

REPORT INFORMATION
  Report Type: 
  Country: None (occurrence: None)
  Receive Date: 20101110
  Receipt Date: 20101027
  Transmission Date: 20110411
  Serious: Yes (Hospitalization)
  Sender: FDA-Public Use
  Company Number: 2010-3746

PATIENT
  Age: 25 Year
  Sex: Female
  Weight: 62 kg

DRUGS (1)
  1. APOMORPHINE NOS (APO-GO) (APOMORPHINE HYDROCHLORIDE) (APOMORPHINE HYDR [Suspect]
     Indication: MIGRAINE
     Dosage: 370 ?G (370 ?G, ONCE), INTRAMUSCULAR
     Route: 030

REACTIONS (18)
  - ASTHENIA [None]
  - CARDIAC ARREST [None]
  - DYSPEPSIA [None]
  - DYSPNOEA [None]
  - EYE ROLLING [None]
  - HEADACHE [None]
  - HYPERHIDROSIS [None]
  - HYPERVENTILATION [None]
  - HYPOTENSION [None]
  - LOSS OF CONSCIOUSNESS [None]
  - NAUSEA [None]
  - PALLOR [None]
  - PULSE ABSENT [None]
  - SYNCOPE [None]
  - TONIC CLONIC MOVEMENTS [None]
  - URINARY INCONTINENCE [None]
  - VOMITING [None]
  - YAWNING [None]
